FAERS Safety Report 5973486-9 (Version None)
Quarter: 2008Q4

REPORT INFORMATION
  Report Type: 
  Country: None (occurrence: None)
  Receive Date: 20081201
  Receipt Date: 20081121
  Transmission Date: 20090506
  Serious: Yes (Hospitalization, Other)
  Sender: FDA-Public Use
  Company Number: US-ELI_LILLY_AND_COMPANY-US200810003229

PATIENT
  Sex: Female
  Weight: 83.9 kg

DRUGS (10)
  1. BYETTA [Suspect]
     Indication: TYPE 2 DIABETES MELLITUS
     Dosage: 5 UG, 2/D
     Route: 058
     Dates: start: 20080331, end: 20080604
  2. BYETTA [Suspect]
     Dosage: 10 UG, 2/D
     Route: 058
     Dates: start: 20080604, end: 20080819
  3. METFORMIN HCL [Concomitant]
     Dosage: 1000 MG, 2/D
     Route: 048
     Dates: end: 20080819
  4. ACIPHEX [Concomitant]
     Indication: GASTROOESOPHAGEAL REFLUX DISEASE
     Dosage: 20 MG, 2/D
     Route: 048
     Dates: end: 20080901
  5. ZOCOR [Concomitant]
     Indication: HYPERLIPIDAEMIA
     Dosage: 80 MG, DAILY (1/D)
     Route: 048
     Dates: start: 20070101, end: 20080901
  6. HYDROCHLOROTHIAZIDE [Concomitant]
     Indication: HYPERTENSION
     Dosage: 25 MG, DAILY (1/D)
     Route: 048
     Dates: start: 20070101, end: 20080901
  7. LISINOPRIL [Concomitant]
     Dosage: 40 MG, 2/D
     Route: 048
     Dates: start: 20070101, end: 20080901
  8. IBUPROFEN TABLETS [Concomitant]
     Dosage: 600 MG, AS NEEDED
     Route: 048
     Dates: start: 20070101, end: 20080901
  9. DILAUDID [Concomitant]
     Indication: PAIN
     Dosage: 2 MG, AS NEEDED
     Route: 048
     Dates: start: 20080901
  10. CELEXA [Concomitant]
     Dosage: 20 MG, DAILY (1/D)
     Route: 048

REACTIONS (4)
  - LUNG INFILTRATION [None]
  - PANCREATIC CARCINOMA METASTATIC [None]
  - PANCREATITIS [None]
  - RENAL FAILURE ACUTE [None]
